FAERS Safety Report 4579266-3 (Version None)
Quarter: 2005Q1

REPORT INFORMATION
  Report Type: 
  Country: None (occurrence: None)
  Receive Date: 20050209
  Receipt Date: 20050209
  Transmission Date: 20050727
  Serious: Yes (Other)
  Sender: FDA-Public Use
  Company Number: None

PATIENT
  Sex: Male

DRUGS (2)
  1. NEURONTIN [Suspect]
     Indication: BACK PAIN
     Dosage: 300 MG TWO TID
     Dates: start: 20041110
  2. NEURONTIN [Suspect]
     Indication: BACK PAIN
     Dosage: 300 MG TWO TID
     Dates: start: 20041112

REACTIONS (3)
  - HEADACHE [None]
  - MALAISE [None]
  - VOMITING [None]
